FAERS Safety Report 25793231 (Version 1)
Quarter: 2025Q3

REPORT INFORMATION
  Report Type: Report from Study
  Country: JP (occurrence: JP)
  Receive Date: 20250911
  Receipt Date: 20250911
  Transmission Date: 20251020
  Serious: Yes (Death, Other)
  Sender: GILEAD
  Company Number: JP-GILEAD-2024-0686624

PATIENT
  Age: 37 Year
  Sex: Male

DRUGS (1)
  1. AXICABTAGENE CILOLEUCEL [Suspect]
     Active Substance: AXICABTAGENE CILOLEUCEL
     Indication: Product used for unknown indication
     Route: 041
     Dates: start: 20240219, end: 20240219

REACTIONS (5)
  - Disease progression [Fatal]
  - Cytokine release syndrome [Recovered/Resolved]
  - Haemophagocytic lymphohistiocytosis [Recovered/Resolved]
  - Pyrexia [Recovered/Resolved]
  - Varicella [Unknown]

NARRATIVE: CASE EVENT DATE: 20240225
